FAERS Safety Report 4819624-2 (Version None)
Quarter: 2005Q4

REPORT INFORMATION
  Report Type: 
  Country: None (occurrence: None)
  Receive Date: 20051102
  Receipt Date: 20051017
  Transmission Date: 20060501
  Serious: Yes (Hospitalization)
  Sender: FDA-Public Use
  Company Number: 2005BL005918

PATIENT
  Age: 6 Year
  Sex: Male

DRUGS (2)
  1. ALBUTEROL SULFATE [Suspect]
     Indication: ASTHMA
     Dosage: 1 DOSE FORM; EVERY 4 HOURS; OROPHARYNGEAL
     Route: 049
     Dates: start: 20050924, end: 20050924
  2. SINGULAIR [Concomitant]

REACTIONS (1)
  - DRUG INEFFECTIVE [None]
